FAERS Safety Report 24814416 (Version 1)
Quarter: 2025Q1

REPORT INFORMATION
  Report Type: Spontaneous
  Country: CN (occurrence: CN)
  Receive Date: 20250107
  Receipt Date: 20250107
  Transmission Date: 20250408
  Serious: Yes (Hospitalization)
  Sender: ACCORD
  Company Number: None

PATIENT
  Age: 73 Year
  Sex: Male
  Weight: 49 kg

DRUGS (3)
  1. TRASTUZUMAB [Suspect]
     Active Substance: TRASTUZUMAB
     Indication: Gastric cancer
     Dosage: 290 MILLIGRAM, QD, IV DRIP
     Dates: start: 20241020, end: 20241020
  2. PACLITAXEL [Suspect]
     Active Substance: PACLITAXEL
     Indication: Gastric cancer
     Dosage: 300 MILLIGRAM, QD, IV DRIP, STERILE POWDER FOR INJECTION
     Dates: start: 20241020, end: 20241020
  3. TISLELIZUMAB [Suspect]
     Active Substance: TISLELIZUMAB
     Indication: Gastric cancer
     Dates: start: 20241020, end: 20241020

REACTIONS (1)
  - Myelosuppression [Recovering/Resolving]

NARRATIVE: CASE EVENT DATE: 20241022
